FAERS Safety Report 10765237 (Version 1)
Quarter: 2015Q1

REPORT INFORMATION
  Report Type: Spontaneous
  Country: CA (occurrence: CA)
  Receive Date: 20150205
  Receipt Date: 20150205
  Transmission Date: 20150721
  Serious: Yes (Death)
  Sender: FDA-Public Use
  Company Number: CA-ROCHE-1530924

PATIENT
  Age: 69 Year
  Sex: Male
  Weight: 84 kg

DRUGS (1)
  1. XELODA [Suspect]
     Active Substance: CAPECITABINE
     Indication: COLON CANCER
     Dosage: THERAPY DURATION: 3 DAYS
     Route: 048

REACTIONS (9)
  - Skin exfoliation [Fatal]
  - Skin toxicity [Fatal]
  - Renal failure [Fatal]
  - Pancytopenia [Fatal]
  - Septic shock [Fatal]
  - Diarrhoea [Fatal]
  - Mouth ulceration [Fatal]
  - Dehydration [Fatal]
  - Erythema [Fatal]
